FAERS Safety Report 6892173-6 (Version None)
Quarter: 2010Q3

REPORT INFORMATION
  Report Type: 
  Country: None (occurrence: None)
  Receive Date: 20100731
  Receipt Date: 20080207
  Transmission Date: 20110219
  Serious: No
  Sender: FDA-Public Use
  Company Number: US-PFIZER INC-2008012043

PATIENT
  Sex: Female
  Weight: 113.6 kg

DRUGS (6)
  1. NEURONTIN [Suspect]
  2. LYRICA [Suspect]
     Indication: FIBROMYALGIA
     Dates: start: 20071201, end: 20080101
  3. AMITRIPTYLINE HYDROCHLORIDE [Suspect]
  4. ESTROGENS SOL/INJ [Suspect]
  5. AMBIEN [Suspect]
  6. DRUG, UNSPECIFIED [Suspect]

REACTIONS (6)
  - AMNESIA [None]
  - BACK PAIN [None]
  - HEADACHE [None]
  - INCREASED APPETITE [None]
  - MUSCULOSKELETAL PAIN [None]
  - WEIGHT INCREASED [None]
